FAERS Safety Report 8220857-6 (Version None)
Quarter: 2012Q1

REPORT INFORMATION
  Report Type: 
  Country: None (occurrence: None)
  Receive Date: 20120313
  Receipt Date: 20120302
  Transmission Date: 20120608
  Serious: No
  Sender: FDA-Public Use
  Company Number: 2012SP012029

PATIENT
  Age: 35 Year
  Sex: Female

DRUGS (1)
  1. SAPHRIS [Suspect]
     Indication: PSYCHOTIC DISORDER
     Dosage: 5 MG, QD, SL
     Route: 060

REACTIONS (4)
  - OFF LABEL USE [None]
  - THROAT TIGHTNESS [None]
  - SWOLLEN TONGUE [None]
  - WHEEZING [None]
